FAERS Safety Report 7529610-X (Version None)
Quarter: 2011Q2

REPORT INFORMATION
  Report Type: 
  Country: None (occurrence: None)
  Receive Date: 20110607
  Receipt Date: 20110520
  Transmission Date: 20111010
  Serious: Yes (Death)
  Sender: FDA-Public Use
  Company Number: A0789783A

PATIENT
  Age: 52 Year
  Sex: Female

DRUGS (1)
  1. AVANDIA [Suspect]
     Indication: TYPE 1 DIABETES MELLITUS
     Dosage: 4MG TWICE PER DAY
     Route: 048
     Dates: start: 20010101, end: 20070801

REACTIONS (13)
  - SUDDEN CARDIAC DEATH [None]
  - PULMONARY EMBOLISM [None]
  - SLEEP APNOEA SYNDROME [None]
  - FALL [None]
  - RENAL FAILURE [None]
  - DEPRESSION [None]
  - URINARY INCONTINENCE [None]
  - MYOCARDIAL ISCHAEMIA [None]
  - CARDIAC FAILURE CONGESTIVE [None]
  - HALLUCINATION [None]
  - DEHYDRATION [None]
  - URINARY TRACT INFECTION [None]
  - MENISCUS LESION [None]
